FAERS Safety Report 23065012 (Version 6)
Quarter: 2023Q4

REPORT INFORMATION
  Report Type: Report from Study
  Country: CN (occurrence: CN)
  Receive Date: 20231013
  Receipt Date: 20231204
  Transmission Date: 20240110
  Serious: Yes (Death, Life-Threatening, Hospitalization)
  Sender: FDA-Public Use
  Company Number: CN-ABBVIE-5442076

PATIENT
  Age: 70 Year
  Sex: Male
  Weight: 71 kg

DRUGS (6)
  1. VENETOCLAX [Suspect]
     Active Substance: VENETOCLAX
     Indication: Plasma cell myeloma refractory
     Route: 048
     Dates: start: 20220701, end: 20230921
  2. DEXAMETHASONE [Suspect]
     Active Substance: DEXAMETHASONE
     Indication: Plasma cell myeloma refractory
     Dosage: ON DAYS 1, 8, 15, 22 OF EACH 28-DAY CYCLE
     Route: 048
     Dates: start: 20220701, end: 20230921
  3. NIFEDIPINE [Concomitant]
     Active Substance: NIFEDIPINE
     Indication: Hypertension
     Dosage: CONTROLLED RELEASE TABLETS
     Route: 048
     Dates: start: 20220701
  4. IRBESARTAN [Concomitant]
     Active Substance: IRBESARTAN
     Indication: Hypertension
     Route: 048
     Dates: start: 20220701
  5. METFORMIN HYDROCHLORIDE [Concomitant]
     Active Substance: METFORMIN HYDROCHLORIDE
     Indication: Hyperglycaemia
     Route: 048
     Dates: start: 20220701
  6. GLYBURIDE [Concomitant]
     Active Substance: GLYBURIDE
     Indication: Hyperglycaemia
     Route: 048
     Dates: start: 20220701

REACTIONS (5)
  - Cerebral infarction [Fatal]
  - Lung disorder [Not Recovered/Not Resolved]
  - Platelet count decreased [Recovered/Resolved]
  - Platelet count decreased [Recovered/Resolved]
  - Cerebral infarction [Recovered/Resolved]

NARRATIVE: CASE EVENT DATE: 20230928
